FAERS Safety Report 10378467 (Version 1)
Quarter: 2014Q3

REPORT INFORMATION
  Report Type: Spontaneous
  Country: BR (occurrence: BR)
  Receive Date: 20140812
  Receipt Date: 20140812
  Transmission Date: 20150326
  Serious: Yes (Death, Life-Threatening, Hospitalization)
  Sender: FDA-Public Use
  Company Number: BR-MYLAN-2014M1001223

PATIENT

DRUGS (3)
  1. FLUOXETINE [Concomitant]
     Active Substance: FLUOXETINE\FLUOXETINE HYDROCHLORIDE
     Indication: DEPRESSION
     Route: 065
  2. CLOMIPRAMINE [Suspect]
     Active Substance: CLOMIPRAMINE
     Route: 065
  3. CLOMIPRAMINE [Suspect]
     Active Substance: CLOMIPRAMINE
     Indication: DEPRESSION
     Dosage: 120 PILLS OF 25 MG
     Route: 048

REACTIONS (15)
  - Intentional overdose [Not Recovered/Not Resolved]
  - Blood creatine phosphokinase increased [None]
  - Lung disorder [None]
  - Brain injury [None]
  - Tremor [Unknown]
  - Hypocalcaemia [None]
  - Brain oedema [None]
  - Rhabdomyolysis [Recovering/Resolving]
  - Dry mouth [Unknown]
  - Hypotension [None]
  - Cardiac arrest [Recovered/Resolved with Sequelae]
  - Completed suicide [None]
  - Toxicity to various agents [Not Recovered/Not Resolved]
  - Transaminases increased [None]
  - Metabolic acidosis [None]
